FAERS Safety Report 7535835-X (Version None)
Quarter: 2011Q2

REPORT INFORMATION
  Report Type: 
  Country: None (occurrence: None)
  Receive Date: 20110609
  Receipt Date: 20110120
  Transmission Date: 20111010
  Serious: Yes (Other)
  Sender: FDA-Public Use
  Company Number: US-BAYER-201030087NA

PATIENT
  Age: 37 Year
  Sex: Female
  Weight: 58.957 kg

DRUGS (9)
  1. YASMIN [Suspect]
     Indication: CONTRACEPTION
     Dosage: UNK
     Route: 048
     Dates: start: 20030101, end: 20060101
  2. YASMIN [Suspect]
     Indication: PREMENSTRUAL SYNDROME
  3. FOLIC ACID [Concomitant]
     Indication: SUPPLEMENTATION THERAPY
     Dosage: UNK UNK, QD
     Route: 048
     Dates: start: 20070201, end: 20070301
  4. FLONASE [Concomitant]
     Indication: MULTIPLE ALLERGIES
     Dosage: UNK
     Dates: start: 20070201, end: 20070301
  5. CLARITIN [Concomitant]
  6. PROZAC [Concomitant]
     Indication: PREMENSTRUAL SYNDROME
     Dosage: 20 MG, UNK
     Route: 048
  7. LACTASE [Concomitant]
     Indication: LACTOSE INTOLERANCE
     Dosage: UNK
     Dates: start: 20070329
  8. CALCIUM CARBONATE [Concomitant]
     Indication: OSTEOPENIA
     Dosage: UNK UNK, TID
     Route: 048
  9. ALLEGRA D 24 HOUR [Concomitant]
     Indication: MULTIPLE ALLERGIES
     Route: 048

REACTIONS (5)
  - GALLBLADDER DISORDER [None]
  - IRRITABLE BOWEL SYNDROME [None]
  - FATIGUE [None]
  - CHOLECYSTITIS CHRONIC [None]
  - POST PROCEDURAL INFECTION [None]
